FAERS Safety Report 13653986 (Version 1)
Quarter: 2017Q2

REPORT INFORMATION
  Report Type: Spontaneous
  Country: CA (occurrence: CA)
  Receive Date: 20170614
  Receipt Date: 20170614
  Transmission Date: 20170830
  Serious: Yes (Other)
  Sender: FDA-Public Use
  Company Number: CA-BAUSCH-BL-2017-018668

PATIENT
  Age: 29 Year
  Sex: Female
  Weight: 59.02 kg

DRUGS (2)
  1. CLINDAMYCIN. [Suspect]
     Active Substance: CLINDAMYCIN
     Indication: POSTPARTUM STATE
     Route: 048
  2. CLINDAMYCIN. [Suspect]
     Active Substance: CLINDAMYCIN
     Indication: INFECTION

REACTIONS (8)
  - Chills [Recovering/Resolving]
  - Diarrhoea [Recovering/Resolving]
  - Clostridium test positive [Recovering/Resolving]
  - Irritable bowel syndrome [Recovering/Resolving]
  - Pyrexia [Recovering/Resolving]
  - Lactose intolerance [Recovering/Resolving]
  - Diarrhoea haemorrhagic [Recovering/Resolving]
  - Abdominal pain [Recovering/Resolving]
